FAERS Safety Report 10490216 (Version 1)
Quarter: 2014Q4

REPORT INFORMATION
  Report Type: Other
  Country: FR (occurrence: FR)
  Receive Date: 20141002
  Receipt Date: 20141002
  Transmission Date: 20150528
  Serious: Yes (Hospitalization)
  Sender: FDA-Public Use
  Company Number: FR-MYLANLABS-2014M1005968

PATIENT

DRUGS (2)
  1. VALPROATE DE SODIUM MYLAN 500 MG [Suspect]
     Active Substance: VALPROATE SODIUM
     Indication: EPILEPSY
     Dosage: 500 MG, TID 15-20 DAYS
     Route: 048
     Dates: start: 200801, end: 200801
  2. SUBUTEX [Concomitant]
     Active Substance: BUPRENORPHINE HYDROCHLORIDE
     Indication: DRUG DEPENDENCE
     Dosage: 2 MG, BID

REACTIONS (2)
  - Product substitution issue [None]
  - Epilepsy [Recovered/Resolved]

NARRATIVE: CASE EVENT DATE: 20080111
